FAERS Safety Report 9287567 (Version 1)
Quarter: 2013Q2

REPORT INFORMATION
  Report Type: Spontaneous
  Country: CA (occurrence: CA)
  Receive Date: 20130514
  Receipt Date: 20130514
  Transmission Date: 20140414
  Serious: Yes (Death)
  Sender: FDA-Public Use
  Company Number: CA-AMGEN-CANSP2013033153

PATIENT
  Age: 78 Year
  Sex: Male
  Weight: 65.91 kg

DRUGS (1)
  1. PROLIA [Suspect]
     Indication: BONE DENSITY ABNORMAL

REACTIONS (1)
  - Death [Fatal]
